FAERS Safety Report 9109381 (Version 1)
Quarter: 2013Q1

REPORT INFORMATION
  Report Type: Spontaneous
  Country: US (occurrence: US)
  Receive Date: 20130222
  Receipt Date: 20130222
  Transmission Date: 20140127
  Serious: Yes (Hospitalization, Other)
  Sender: FDA-Public Use
  Company Number: PHEH2013US004282

PATIENT
  Sex: Female

DRUGS (5)
  1. DIOVAN HCT [Suspect]
     Indication: BLOOD PRESSURE
     Dosage: 1 DF (160/25MG), QD
     Route: 048
  2. DIOVAN HCT [Suspect]
     Dosage: 320/25 MG, UKN
     Route: 048
  3. DIOVAN HCT [Suspect]
     Dosage: 1 DF (160/25 MG ), UKN
     Route: 048
  4. SIMVASTATIN [Concomitant]
  5. PLAVIX [Concomitant]

REACTIONS (5)
  - Pulmonary oedema [Unknown]
  - Dyspnoea [Unknown]
  - Blood pressure decreased [Unknown]
  - Cardiac flutter [Unknown]
  - Malaise [Unknown]
